FAERS Safety Report 6972877-7 (Version None)
Quarter: 2010Q3

REPORT INFORMATION
  Report Type: 
  Country: None (occurrence: None)
  Receive Date: 20100909
  Receipt Date: 20100518
  Transmission Date: 20110219
  Serious: No
  Sender: FDA-Public Use
  Company Number: US-KINGPHARMUSA00001-K201000631

PATIENT
  Sex: Female
  Weight: 63.492 kg

DRUGS (2)
  1. EMBEDA [Suspect]
     Indication: PAIN
     Dosage: 60 MG, BID
     Route: 048
     Dates: start: 20100511, end: 20100513
  2. BACLOFEN [Concomitant]
     Dosage: 20 MG, PRN

REACTIONS (14)
  - BREAST PAIN [None]
  - DECREASED APPETITE [None]
  - DYSPHAGIA [None]
  - FATIGUE [None]
  - FLUID INTAKE REDUCED [None]
  - HYPOAESTHESIA [None]
  - LETHARGY [None]
  - LIP SWELLING [None]
  - MIGRAINE [None]
  - NEURALGIA [None]
  - PAIN IN EXTREMITY [None]
  - SWOLLEN TONGUE [None]
  - TOOTHACHE [None]
  - VOMITING [None]
